FAERS Safety Report 8905912 (Version 3)
Quarter: 2013Q1

REPORT INFORMATION
  Report Type: Spontaneous
  Country: US (occurrence: US)
  Receive Date: 20121113
  Receipt Date: 20130327
  Transmission Date: 20140127
  Serious: Yes (Hospitalization, Disabling, Other)
  Sender: FDA-Public Use
  Company Number: US-ASTRAZENECA-2012SE76908

PATIENT
  Age: 27968 Day
  Sex: Female
  Weight: 60.8 kg

DRUGS (1)
  1. CRESTOR [Suspect]
     Route: 048
     Dates: start: 20050310

REACTIONS (3)
  - Malignant peritoneal neoplasm [Unknown]
  - Coronary artery disease [Unknown]
  - Ovarian cancer [Not Recovered/Not Resolved]
